FAERS Safety Report 20638550 (Version 1)
Quarter: 2022Q1

REPORT INFORMATION
  Report Type: Spontaneous
  Country: US (occurrence: US)
  Receive Date: 20220325
  Receipt Date: 20220325
  Transmission Date: 20220424
  Serious: No
  Sender: FDA-Public Use
  Company Number: US-SA-SAC20220317000177

PATIENT
  Sex: Female

DRUGS (1)
  1. LARONIDASE [Suspect]
     Active Substance: LARONIDASE
     Indication: Mucopolysaccharidosis I
     Dosage: 9 MG, QW
     Route: 042
     Dates: start: 20210720

REACTIONS (2)
  - Sinusitis [Recovering/Resolving]
  - Laboratory test abnormal [Recovering/Resolving]
